FAERS Safety Report 6488013-X (Version None)
Quarter: 2009Q4

REPORT INFORMATION
  Report Type: 
  Country: None (occurrence: None)
  Receive Date: 20091210
  Receipt Date: 20091202
  Transmission Date: 20100525
  Serious: Yes (Hospitalization, Other)
  Sender: FDA-Public Use
  Company Number: PHHO2009US14948

PATIENT
  Sex: Male
  Weight: 67 kg

DRUGS (8)
  1. AFINITOR [Suspect]
     Indication: GLIOBLASTOMA MULTIFORME
     Dosage: 10MG QD
     Route: 048
     Dates: start: 20090715, end: 20091121
  2. AVASTIN [Suspect]
     Indication: GLIOBLASTOMA MULTIFORME
     Dosage: UNK
     Route: 042
     Dates: start: 20090506, end: 20091118
  3. TEMOZOLOMIDE COMP-TEMO+ [Suspect]
     Indication: GLIOBLASTOMA MULTIFORME
     Dosage: 100MG QD
     Route: 048
     Dates: start: 20090506, end: 20090616
  4. LEXAPRO [Concomitant]
     Dosage: UNK
     Dates: start: 20090320
  5. DIOVAN [Concomitant]
     Dosage: UNK
     Dates: start: 19990101
  6. NORVASC [Concomitant]
     Dosage: UNK
     Dates: start: 20090928
  7. DEXAMETHASONE TAB [Concomitant]
     Dosage: UNK
     Dates: start: 20090325
  8. KEPPRA [Concomitant]
     Dosage: UNK
     Dates: start: 20091101

REACTIONS (8)
  - CONFUSIONAL STATE [None]
  - DECREASED APPETITE [None]
  - DYSPNOEA [None]
  - FATIGUE [None]
  - INTERSTITIAL LUNG DISEASE [None]
  - LUNG INFILTRATION [None]
  - PANCREATITIS [None]
  - PNEUMONITIS [None]
